FAERS Safety Report 7752405-9 (Version None)
Quarter: 2011Q3

REPORT INFORMATION
  Report Type: 
  Country: None (occurrence: None)
  Receive Date: 20110915
  Receipt Date: 20110905
  Transmission Date: 20111222
  Serious: Yes (Other)
  Sender: FDA-Public Use
  Company Number: PHHY2011JP66366

PATIENT
  Age: 49 Year
  Sex: Male

DRUGS (2)
  1. TASIGNA [Suspect]
     Dosage: 300 MG, DAILY
     Dates: start: 20110829
  2. TASIGNA [Suspect]
     Indication: CHRONIC MYELOID LEUKAEMIA
     Dosage: 600 MG, DAILY
     Route: 048
     Dates: start: 20110613, end: 20110801

REACTIONS (4)
  - RASH [None]
  - ALANINE AMINOTRANSFERASE INCREASED [None]
  - ASPARTATE AMINOTRANSFERASE INCREASED [None]
  - PRURITUS [None]
